FAERS Safety Report 10452080 (Version 3)
Quarter: 2014Q3

REPORT INFORMATION
  Report Type: Report from Study
  Country: US (occurrence: US)
  Receive Date: 20140915
  Receipt Date: 20140919
  Transmission Date: 20150326
  Serious: Yes (Hospitalization, Other)
  Sender: FDA-Public Use
  Company Number: US-AUROBINDO-AUR-APL-2014-08874

PATIENT
  Sex: Male
  Weight: 78.5 kg

DRUGS (12)
  1. CRESTOR [Suspect]
     Active Substance: ROSUVASTATIN CALCIUM
     Dosage: 20 MG, DAILY
     Route: 048
  2. KEPPRA [Concomitant]
     Active Substance: LEVETIRACETAM
     Indication: PRODUCT USED FOR UNKNOWN INDICATION
     Dosage: UNK
     Route: 065
  3. NITROGLYCERIN. [Concomitant]
     Active Substance: NITROGLYCERIN
     Indication: PRODUCT USED FOR UNKNOWN INDICATION
     Dosage: UNK
     Route: 065
  4. ATENOLOL TABLETS USP 100 MG [Suspect]
     Active Substance: ATENOLOL
     Indication: CARDIAC DISORDER
     Dosage: 100 MG, TWO TIMES A DAY
     Route: 048
  5. AMLODIPINE [Concomitant]
     Active Substance: AMLODIPINE BESYLATE
     Indication: CARDIAC DISORDER
     Dosage: UNKNOWN
     Route: 065
  6. PRIMIDONE. [Concomitant]
     Active Substance: PRIMIDONE
     Indication: PRODUCT USED FOR UNKNOWN INDICATION
     Dosage: UNK
     Route: 065
  7. TRAMADOL [Concomitant]
     Active Substance: TRAMADOL
     Indication: PRODUCT USED FOR UNKNOWN INDICATION
     Dosage: UNK
     Route: 065
  8. PLAVIX [Concomitant]
     Active Substance: CLOPIDOGREL BISULFATE
     Indication: CARDIAC DISORDER
     Dosage: UNKNOWN
     Route: 065
  9. MULTIVITAMINS [Concomitant]
     Active Substance: VITAMINS
     Indication: PRODUCT USED FOR UNKNOWN INDICATION
     Dosage: UNK
     Route: 065
  10. LISINOPRIL TABLETS USP 40 MG [Suspect]
     Active Substance: LISINOPRIL
     Indication: CARDIAC DISORDER
     Dosage: 40 MG, DAILY
     Route: 048
  11. CRESTOR [Suspect]
     Active Substance: ROSUVASTATIN CALCIUM
     Indication: BLOOD CHOLESTEROL
     Dosage: 10 MG, DAILY
     Route: 048
     Dates: start: 2012
  12. ASA [Concomitant]
     Active Substance: ASPIRIN
     Indication: CARDIAC DISORDER
     Dosage: UNKNOWN
     Route: 065

REACTIONS (44)
  - Periarthritis [Unknown]
  - Depression [Unknown]
  - Vertigo [Unknown]
  - Gingival bleeding [Unknown]
  - Posture abnormal [Unknown]
  - Gait disturbance [Unknown]
  - Tremor [Unknown]
  - Insomnia [Unknown]
  - Dyspepsia [Unknown]
  - Balance disorder [Unknown]
  - Dyspnoea [Unknown]
  - Hypoaesthesia [Unknown]
  - Choking [Unknown]
  - Visual acuity reduced [Unknown]
  - Diarrhoea [Unknown]
  - Orthopnoea [Unknown]
  - Hypertension [Unknown]
  - Myoclonus [Unknown]
  - Asthenia [Unknown]
  - Nocturia [Unknown]
  - Chills [Unknown]
  - Apnoea [Unknown]
  - Dizziness [Unknown]
  - Sinus disorder [Unknown]
  - Cough [Unknown]
  - Back pain [Unknown]
  - Abdominal pain [Unknown]
  - Bradykinesia [Unknown]
  - Epistaxis [Unknown]
  - Chest discomfort [Unknown]
  - Vomiting [Unknown]
  - Temperature intolerance [Unknown]
  - Hypokinesia [Unknown]
  - Myocardial infarction [Unknown]
  - Chest pain [Unknown]
  - Fatigue [Unknown]
  - Sleep talking [Unknown]
  - Poor personal hygiene [Unknown]
  - Parasomnia [Unknown]
  - Peripheral coldness [Unknown]
  - Oedema [Unknown]
  - Musculoskeletal pain [Unknown]
  - Hyperhidrosis [Unknown]
  - Snoring [Unknown]
